FAERS Safety Report 7963085-1 (Version None)
Quarter: 2011Q4

REPORT INFORMATION
  Report Type: 
  Country: None (occurrence: None)
  Receive Date: 20111207
  Receipt Date: 20111202
  Transmission Date: 20120403
  Serious: Yes (Other)
  Sender: FDA-Public Use
  Company Number: DE-AMGEN-DEUSP2011036208

PATIENT
  Age: 66 Year
  Sex: Female

DRUGS (3)
  1. NOCTAMID [Concomitant]
  2. BETA BLOCKING AGENTS [Concomitant]
  3. VECTIBIX [Suspect]
     Indication: COLON CANCER
     Dosage: UNK
     Dates: start: 20110617

REACTIONS (5)
  - SKIN REACTION [None]
  - PRURITUS [None]
  - BILE DUCT OBSTRUCTION [None]
  - NEOPLASM PROGRESSION [None]
  - RASH PUSTULAR [None]
